FAERS Safety Report 8073556-8 (Version None)
Quarter: 2012Q1

REPORT INFORMATION
  Report Type: 
  Country: None (occurrence: None)
  Receive Date: 20120126
  Receipt Date: 20120119
  Transmission Date: 20120608
  Serious: No
  Sender: FDA-Public Use
  Company Number: US-PFIZER INC-2012016667

PATIENT

DRUGS (1)
  1. LYRICA [Suspect]
     Dosage: UNK

REACTIONS (5)
  - HEADACHE [None]
  - MYALGIA [None]
  - FEELING ABNORMAL [None]
  - NAUSEA [None]
  - WITHDRAWAL SYNDROME [None]
